FAERS Safety Report 8401629-6 (Version None)
Quarter: 2012Q2

REPORT INFORMATION
  Report Type: 
  Country: None (occurrence: None)
  Receive Date: 20120529
  Receipt Date: 20120521
  Transmission Date: 20120825
  Serious: Yes (Death, Hospitalization)
  Sender: FDA-Public Use
  Company Number: 2012SP026417

PATIENT
  Age: 54 Year
  Sex: Male
  Weight: 70 kg

DRUGS (1)
  1. PEG-INTRON [Suspect]
     Indication: HEPATITIS B
     Dosage: 1.5 MCG/KG;SC
     Route: 058
     Dates: start: 20110415, end: 20120329

REACTIONS (6)
  - ALTERED STATE OF CONSCIOUSNESS [None]
  - INTESTINAL MASS [None]
  - TACHYCARDIA [None]
  - UPPER GASTROINTESTINAL HAEMORRHAGE [None]
  - SEPTIC SHOCK [None]
  - HYPOXIA [None]
